FAERS Safety Report 11138839 (Version 2)
Quarter: 2015Q3

REPORT INFORMATION
  Report Type: Spontaneous
  Country: US (occurrence: US)
  Receive Date: 20150527
  Receipt Date: 20150805
  Transmission Date: 20151125
  Serious: No
  Sender: FDA-Public Use
  Company Number: US-009507513-1505USA011193

PATIENT
  Age: 14 Year
  Sex: Female
  Weight: 54.42 kg

DRUGS (4)
  1. DULERA [Concomitant]
     Active Substance: FORMOTEROL FUMARATE DIHYDRATE\MOMETASONE FUROATE
     Dosage: 2 PUFFS, BID
     Route: 055
     Dates: start: 201403
  2. GRASTEK [Suspect]
     Active Substance: PHLEUM PRATENSE POLLEN
     Indication: SEASONAL ALLERGY
     Dosage: TOTAL DAILY DOSE: 1 TABLET
     Route: 060
     Dates: start: 20150508, end: 20150518
  3. PROVENTIL [Concomitant]
     Active Substance: ALBUTEROL
     Dosage: TOTAL DAILY DOSE: 2 PUFFS
     Route: 055
     Dates: start: 201403
  4. NASONEX [Concomitant]
     Active Substance: MOMETASONE FUROATE
     Dosage: TOTAL DAILY DOSE: 2 PUFFS
     Route: 045
     Dates: start: 201403

REACTIONS (1)
  - Gingival bleeding [Recovered/Resolved]

NARRATIVE: CASE EVENT DATE: 20150518
